FAERS Safety Report 6042821-8 (Version None)
Quarter: 2009Q1

REPORT INFORMATION
  Report Type: 
  Country: None (occurrence: None)
  Receive Date: 20090119
  Receipt Date: 20090112
  Transmission Date: 20090719
  Serious: Yes (Other)
  Sender: FDA-Public Use
  Company Number: US-BAYER-200835066NA

PATIENT
  Sex: Female

DRUGS (1)
  1. CAMPATH [Suspect]
     Indication: RENAL TRANSPLANT
     Route: 042

REACTIONS (2)
  - HYPOTENSION [None]
  - URINE OUTPUT DECREASED [None]
